FAERS Safety Report 20168436 (Version 1)
Quarter: 2021Q4

REPORT INFORMATION
  Report Type: Report from Study
  Country: IT (occurrence: IT)
  Receive Date: 20211210
  Receipt Date: 20211210
  Transmission Date: 20220303
  Serious: Yes (Other)
  Sender: FDA-Public Use
  Company Number: None

PATIENT
  Age: 85 Year
  Sex: Male
  Weight: 59 kg

DRUGS (5)
  1. OXALIPLATIN [Suspect]
     Active Substance: OXALIPLATIN
     Indication: Adenocarcinoma gastric
     Dosage: 95MG, TEVA
     Dates: start: 20210730, end: 20211122
  2. FLUOROURACIL [Suspect]
     Active Substance: FLUOROURACIL
     Indication: Adenocarcinoma gastric
     Dosage: TEVA 5 G / 100 ML, 100 MG
     Dates: start: 20210730, end: 20211028
  3. FLUOROURACIL [Suspect]
     Active Substance: FLUOROURACIL
     Indication: Adenocarcinoma gastric
     Dosage: 2680 MG
     Dates: start: 20210730, end: 20211028
  4. CALCIO LEVOFOLINATE [Concomitant]
     Indication: Adenocarcinoma gastric
     Dosage: TEVA ,225 MG
     Dates: start: 20210730
  5. HERZUMA [Concomitant]
     Active Substance: TRASTUZUMAB-PKRB
     Indication: Adenocarcinoma gastric
     Dosage: 350 MG
     Dates: start: 20210730

REACTIONS (2)
  - Hypertransaminasaemia [Not Recovered/Not Resolved]
  - Vomiting [Not Recovered/Not Resolved]

NARRATIVE: CASE EVENT DATE: 20211029
